FAERS Safety Report 14147159 (Version 1)
Quarter: 2017Q4

REPORT INFORMATION
  Report Type: Other
  Country: US (occurrence: US)
  Receive Date: 20171031
  Receipt Date: 20171031
  Transmission Date: 20180321
  Serious: Yes (Other)
  Sender: FDA-Public Use
  Company Number: US-IMPRIMIS NJOF-2032892

PATIENT
  Age: 71 Year
  Sex: Male
  Weight: 81.82 kg

DRUGS (1)
  1. PREDNISOLONE-GATIFLOXACIN-NEPAFENAC (1/0.5/0.1) % [Suspect]
     Active Substance: GATIFLOXACIN\NEPAFENAC\PREDNISOLONE

REACTIONS (1)
  - Endophthalmitis [None]
